FAERS Safety Report 11130622 (Version 2)
Quarter: 2015Q2

REPORT INFORMATION
  Report Type: Spontaneous
  Country: US (occurrence: US)
  Receive Date: 20150522
  Receipt Date: 20150526
  Transmission Date: 20150821
  Serious: No
  Sender: FDA-Public Use
  Company Number: US-TEVA-562723ACC

PATIENT
  Age: 28 Year
  Sex: Female
  Weight: 107.6 kg

DRUGS (1)
  1. PARAGARD T 380A [Suspect]
     Active Substance: COPPER
     Indication: CONTRACEPTION
     Route: 015
     Dates: start: 20131010

REACTIONS (2)
  - Device expulsion [Recovered/Resolved]
  - Coital bleeding [Not Recovered/Not Resolved]

NARRATIVE: CASE EVENT DATE: 201501
